FAERS Safety Report 4929384-2 (Version None)
Quarter: 2006Q1

REPORT INFORMATION
  Report Type: 
  Country: None (occurrence: None)
  Receive Date: 20060224
  Receipt Date: 20060212
  Transmission Date: 20060701
  Serious: Yes (Hospitalization)
  Sender: FDA-Public Use
  Company Number: HQWYE824416FEB06

PATIENT
  Age: 60 Year
  Sex: Female

DRUGS (3)
  1. RAPAMUNE [Suspect]
     Indication: PROPHYLAXIS AGAINST TRANSPLANT REJECTION
     Dosage: 1 MG 1X PER 1 DAY ORAL
     Route: 048
     Dates: start: 20050125, end: 20050324
  2. CYCLOSPORINE [Concomitant]
  3. NPH INSULIN [Concomitant]

REACTIONS (4)
  - DRUG INEFFECTIVE [None]
  - IMPAIRED HEALING [None]
  - KIDNEY TRANSPLANT REJECTION [None]
  - PYREXIA [None]
